FAERS Safety Report 17949561 (Version 7)
Quarter: 2020Q3

REPORT INFORMATION
  Report Type: Report from Study
  Country: CN (occurrence: CN)
  Receive Date: 20200626
  Receipt Date: 20200927
  Transmission Date: 20201103
  Serious: Yes (Hospitalization)
  Sender: FDA-Public Use
  Company Number: CN-ROCHE-2627985

PATIENT
  Age: 51 Year
  Sex: Female
  Weight: 76 kg

DRUGS (24)
  1. VITAMIN C [Concomitant]
     Active Substance: ASCORBIC ACID
     Indication: VITAMIN SUPPLEMENTATION
     Dates: start: 20200519, end: 20200519
  2. POTASSIUM CHLORIDE. [Concomitant]
     Active Substance: POTASSIUM CHLORIDE
     Dates: start: 20200626, end: 20200627
  3. CARBOPLATIN. [Suspect]
     Active Substance: CARBOPLATIN
     Indication: MALIGNANT PERITONEAL NEOPLASM
     Dosage: ON 08/JAN/2020, SHE RECEIVED MOST RECENT DOSE OF CARBOPLATIN (650 MG) PRIOR TO SERIOUS ADVERSE EVENT
     Route: 042
     Dates: start: 20190920
  4. RAMOSETRON HYDROCHLORIDE [Concomitant]
     Active Substance: RAMOSETRON HYDROCHLORIDE
     Dates: start: 20200610, end: 20200610
  5. POTASSIUM CHLORIDE. [Concomitant]
     Active Substance: POTASSIUM CHLORIDE
     Dates: start: 20200618, end: 20200621
  6. ORNITHINE ASPARTATE [Concomitant]
     Active Substance: ORNITHINE ASPARTATE
     Indication: ALANINE AMINOTRANSFERASE INCREASED
  7. PACLITAXEL. [Suspect]
     Active Substance: PACLITAXEL
     Indication: MALIGNANT PERITONEAL NEOPLASM
     Dosage: ON 08/JAN/2020, SHE RECEIVED MOST RECENT DOSE OF PACLITAXEL (240 MG) PRIOR TO SERIOUS ADVERSE EVENT.
     Route: 042
     Dates: start: 20190920
  8. POLYENE PHOSPHATIDYLCHOLINE [Concomitant]
     Active Substance: PHOSPHOLIPID
     Indication: ASPARTATE AMINOTRANSFERASE INCREASED
     Dosage: ONGOING: YES
     Route: 065
     Dates: start: 20200321, end: 20200608
  9. POTASSIUM CHLORIDE. [Concomitant]
     Active Substance: POTASSIUM CHLORIDE
     Dates: start: 20200610, end: 20200610
  10. VITAMIN B6 [Concomitant]
     Active Substance: PYRIDOXINE HYDROCHLORIDE
     Dates: start: 20200610, end: 20200610
  11. MAGNESIUM ISOGLYCYRRHIZINATE [Concomitant]
     Active Substance: MAGNESIUM ISOGLYCYRRHIZINATE
     Indication: ASPARTATE AMINOTRANSFERASE INCREASED
     Dates: start: 20200609, end: 20200609
  12. RAMOSETRON HYDROCHLORIDE [Concomitant]
     Active Substance: RAMOSETRON HYDROCHLORIDE
     Indication: PROPHYLAXIS OF NAUSEA AND VOMITING
     Dates: start: 20200519, end: 20200519
  13. REDUCED GLUTATHIONE SODIUM [Concomitant]
     Active Substance: GLUTATHIONE
     Indication: ASPARTATE AMINOTRANSFERASE INCREASED
     Dates: start: 20200609, end: 20200609
  14. FAMOTIDINE. [Concomitant]
     Active Substance: FAMOTIDINE
     Dates: start: 20200618, end: 20200627
  15. SODIUM POTASSIUM MAGNESIUM CALCIUM AND GLUCOSE [Concomitant]
     Dates: start: 20200618, end: 20200627
  16. POTASSIUM CHLORIDE. [Concomitant]
     Active Substance: POTASSIUM CHLORIDE
     Dates: start: 20200519, end: 20200519
  17. TERBUTALINE SULFATE. [Concomitant]
     Active Substance: TERBUTALINE SULFATE
     Dates: start: 20200627, end: 20200701
  18. BEVACIZUMAB. [Suspect]
     Active Substance: BEVACIZUMAB
     Indication: MALIGNANT PERITONEAL NEOPLASM
     Dosage: ON 10/JUN/2020, SHE RECEIVED MOST RECENT DOSE OF BEVACIZUMAB PRIOR TO SERIOUS ADVERSE EVENT
     Route: 042
     Dates: start: 20191015
  19. POLYENE PHOSPHATIDYLCHOLINE [Concomitant]
     Active Substance: PHOSPHOLIPID
     Indication: GAMMA-GLUTAMYLTRANSFERASE INCREASED
  20. VITAMIN C [Concomitant]
     Active Substance: ASCORBIC ACID
     Dates: start: 20200610, end: 20200610
  21. POTASSIUM CHLORIDE. [Concomitant]
     Active Substance: POTASSIUM CHLORIDE
     Dates: start: 20200626, end: 20200627
  22. VITAMIN B6 [Concomitant]
     Active Substance: PYRIDOXINE HYDROCHLORIDE
     Indication: PROPHYLAXIS OF NAUSEA AND VOMITING
     Dates: start: 20200519, end: 20200519
  23. ORNITHINE ASPARTATE [Concomitant]
     Active Substance: ORNITHINE ASPARTATE
     Indication: ASPARTATE AMINOTRANSFERASE INCREASED
     Dates: start: 20200619, end: 20200627
  24. SODIUM CHLORIDE;TRANEXAMIC ACID [Concomitant]
     Dates: start: 20200627, end: 20200628

REACTIONS (2)
  - Pancreatitis acute [Recovered/Resolved]
  - Cholecystitis acute [Recovered/Resolved]

NARRATIVE: CASE EVENT DATE: 20200618
